FAERS Safety Report 10611995 (Version 3)
Quarter: 2014Q4

REPORT INFORMATION
  Report Type: Report from Study
  Country: US (occurrence: US)
  Receive Date: 20141126
  Receipt Date: 20141205
  Transmission Date: 20150529
  Serious: Yes (Other)
  Sender: FDA-Public Use
  Company Number: US-GILEAD-2014-0115811

PATIENT
  Age: 52 Year
  Sex: Female

DRUGS (4)
  1. ATIVAN [Concomitant]
     Active Substance: LORAZEPAM
     Indication: ANXIETY
     Dosage: UNK
     Route: 048
  2. SOFOSBUVIR [Suspect]
     Active Substance: SOFOSBUVIR
     Indication: CHRONIC HEPATITIS C
     Dosage: 400 MG, UNK
     Route: 048
     Dates: start: 20140821, end: 20140910
  3. OMEPRAZOLE. [Concomitant]
     Active Substance: OMEPRAZOLE
     Indication: GASTROOESOPHAGEAL REFLUX DISEASE
     Dosage: UNK
     Route: 048
  4. OLYSIO [Concomitant]
     Active Substance: SIMEPREVIR
     Indication: CHRONIC HEPATITIS C
     Dosage: 150 MG, UNK
     Route: 048
     Dates: start: 20140821, end: 20140910

REACTIONS (14)
  - Fatigue [Unknown]
  - Anorectal swelling [Recovered/Resolved]
  - Diarrhoea [Unknown]
  - Gastric haemorrhage [Unknown]
  - Headache [Recovered/Resolved]
  - Anal haemorrhage [Recovered/Resolved]
  - Dyspepsia [Recovered/Resolved]
  - Medication residue present [Recovered/Resolved]
  - Malaise [Unknown]
  - Nausea [Unknown]
  - Haematochezia [Unknown]
  - Constipation [Unknown]
  - Gastric disorder [Unknown]
  - Hepatitis C virus test positive [Unknown]
